FAERS Safety Report 20152261 (Version 1)
Quarter: 2021Q4

REPORT INFORMATION
  Report Type: Spontaneous
  Country: US (occurrence: None)
  Receive Date: 20211205
  Receipt Date: 20211205
  Transmission Date: 20220303
  Serious: Yes (Disabling)
  Sender: FDA-Public Use
  Company Number: None

PATIENT
  Age: 18 Year
  Sex: Male
  Weight: 103.5 kg

DRUGS (1)
  1. OLANZAPINE [Suspect]
     Active Substance: OLANZAPINE
     Indication: Affective disorder
     Dosage: OTHER QUANTITY : 30 TABLET(S);?FREQUENCY : TWICE A DAY;?
     Route: 048

REACTIONS (8)
  - Speech sound disorder [None]
  - Weight increased [None]
  - Somnolence [None]
  - Educational problem [None]
  - Rash [None]
  - Flat affect [None]
  - Disorientation [None]
  - Asthenia [None]

NARRATIVE: CASE EVENT DATE: 20211010
